FAERS Safety Report 17035847 (Version 1)
Quarter: 2019Q4

REPORT INFORMATION
  Report Type: Spontaneous
  Country: US (occurrence: US)
  Receive Date: 20191115
  Receipt Date: 20191115
  Transmission Date: 20200122
  Serious: Yes (Hospitalization)
  Sender: FDA-Public Use
  Company Number: US-ELI_LILLY_AND_COMPANY-US201911003359

PATIENT
  Age: 47 Year
  Sex: Female

DRUGS (7)
  1. MIRALAX [Concomitant]
     Active Substance: POLYETHYLENE GLYCOL 3350
     Indication: PRODUCT USED FOR UNKNOWN INDICATION
  2. NOVOLIN R [Concomitant]
     Active Substance: INSULIN HUMAN
     Indication: TYPE 1 DIABETES MELLITUS
     Dosage: 12 U, DAILY
  3. HUMALOG [Suspect]
     Active Substance: INSULIN LISPRO
     Indication: TYPE 1 DIABETES MELLITUS
     Dosage: UNK, UNKNOWN
     Route: 065
     Dates: start: 1999
  4. TOUJEO [Concomitant]
     Active Substance: INSULIN GLARGINE
     Indication: TYPE 1 DIABETES MELLITUS
     Dosage: 37 U, DAILY
  5. VITAMIN D NOS [Concomitant]
     Active Substance: VITAMIN D NOS
     Indication: PRODUCT USED FOR UNKNOWN INDICATION
  6. DRAMAMINE [Concomitant]
     Active Substance: DIMENHYDRINATE
     Indication: PRODUCT USED FOR UNKNOWN INDICATION
  7. CITALOPRAM [Concomitant]
     Active Substance: CITALOPRAM HYDROBROMIDE
     Indication: PRODUCT USED FOR UNKNOWN INDICATION

REACTIONS (15)
  - Hypertension [Unknown]
  - Cardiac failure congestive [Unknown]
  - Eye haemorrhage [Not Recovered/Not Resolved]
  - Depression [Unknown]
  - Blood cholesterol increased [Unknown]
  - Myocardial infarction [Recovered/Resolved]
  - Impaired gastric emptying [Unknown]
  - Spinal stenosis [Unknown]
  - Ankle fracture [Recovered/Resolved]
  - Blood glucose decreased [Not Recovered/Not Resolved]
  - Postoperative wound infection [Recovered/Resolved]
  - Upper limb fracture [Recovered/Resolved]
  - Foot fracture [Recovered/Resolved]
  - Fall [Unknown]
  - Neuropathy peripheral [Unknown]

NARRATIVE: CASE EVENT DATE: 1999
